FAERS Safety Report 5193496-1 (Version None)
Quarter: 2006Q4

REPORT INFORMATION
  Report Type: 
  Country: None (occurrence: None)
  Receive Date: 20061228
  Receipt Date: 20060608
  Transmission Date: 20070319
  Serious: No
  Sender: FDA-Public Use
  Company Number: US-GLAXOSMITHKLINE-A0608388A

PATIENT
  Sex: Female

DRUGS (5)
  1. FLONASE [Suspect]
     Dosage: 2PUFF PER DAY
     Route: 045
  2. BENICAR [Concomitant]
  3. WARFARIN SODIUM [Concomitant]
  4. ATENOLOL [Concomitant]
  5. SYNTHROID [Concomitant]

REACTIONS (1)
  - RASH [None]
